FAERS Safety Report 21412376 (Version 1)
Quarter: 2022Q4

REPORT INFORMATION
  Report Type: Spontaneous
  Country: US (occurrence: US)
  Receive Date: 20221005
  Receipt Date: 20221005
  Transmission Date: 20230113
  Serious: No
  Sender: FDA-Public Use
  Company Number: US-INTRA-CELLULAR THERAPIES, INC.-2022ICT00780

PATIENT
  Age: 58 Year
  Sex: Male

DRUGS (4)
  1. CAPLYTA [Suspect]
     Active Substance: LUMATEPERONE
     Indication: Schizophrenia
     Dosage: 42 MG, 1X/DAY
     Dates: start: 202112
  2. LIPITOR [Concomitant]
     Active Substance: ATORVASTATIN CALCIUM
  3. ZYPREXA [Concomitant]
     Active Substance: OLANZAPINE
  4. UNSPECIFIED INGREDIENT [Concomitant]
     Active Substance: UNSPECIFIED INGREDIENT

REACTIONS (3)
  - Anxiety [Not Recovered/Not Resolved]
  - Palpitations [Not Recovered/Not Resolved]
  - Dyspnoea [Not Recovered/Not Resolved]
